FAERS Safety Report 5039064-3 (Version None)
Quarter: 2006Q2

REPORT INFORMATION
  Report Type: 
  Country: None (occurrence: None)
  Receive Date: 20060601
  Receipt Date: 20060109
  Transmission Date: 20061013
  Serious: No
  Sender: FDA-Public Use
  Company Number: 2005PV002208

PATIENT
  Age: 66 Year
  Sex: Female
  Weight: 79.3795 kg

DRUGS (8)
  1. BYETTA [Suspect]
     Indication: DIABETES MELLITUS NON-INSULIN-DEPENDENT
     Dosage: SEE IMAGE
     Route: 058
     Dates: start: 20050601, end: 20050701
  2. BYETTA [Suspect]
     Indication: DIABETES MELLITUS NON-INSULIN-DEPENDENT
     Dosage: SEE IMAGE
     Route: 058
     Dates: start: 20050701, end: 20050701
  3. BYETTA [Suspect]
     Indication: DIABETES MELLITUS NON-INSULIN-DEPENDENT
     Dosage: SEE IMAGE
     Route: 058
     Dates: start: 20050701
  4. HUMALOG [Concomitant]
  5. LANTUS [Concomitant]
  6. GLUCOPHAGE [Concomitant]
  7. ZETIA [Concomitant]
  8. MONOPRIL [Concomitant]

REACTIONS (15)
  - ASTHENIA [None]
  - BLOOD GLUCOSE DECREASED [None]
  - BLOOD GLUCOSE INCREASED [None]
  - BLOOD PRESSURE INCREASED [None]
  - CONSTIPATION [None]
  - DECREASED APPETITE [None]
  - DEHYDRATION [None]
  - DIZZINESS [None]
  - FATIGUE [None]
  - HEADACHE [None]
  - HYPERHIDROSIS [None]
  - NASOPHARYNGITIS [None]
  - NAUSEA [None]
  - VOMITING [None]
  - WEIGHT DECREASED [None]
